FAERS Safety Report 9359143 (Version 1)
Quarter: 2013Q2

REPORT INFORMATION
  Report Type: Spontaneous
  Country: FR (occurrence: None)
  Receive Date: 20130617
  Receipt Date: 20130617
  Transmission Date: 20140414
  Serious: Yes (Hospitalization)
  Sender: FDA-Public Use
  Company Number: 7215920

PATIENT
  Age: 38 Year
  Sex: Female

DRUGS (2)
  1. LEVOTHYROX [Suspect]
     Indication: POST PROCEDURAL HYPOTHYROIDISM
     Route: 048
  2. CERAZETTE (DESOGESTREL) [Concomitant]

REACTIONS (7)
  - Cyanosis [None]
  - Arthralgia [None]
  - Hypoaesthesia [None]
  - Peripheral coldness [None]
  - Ischaemia [None]
  - Hepatocellular injury [None]
  - Peripheral vascular disorder [None]
